FAERS Safety Report 10860532 (Version 1)
Quarter: 2015Q1

REPORT INFORMATION
  Report Type: Spontaneous
  Country: US (occurrence: US)
  Receive Date: 20150223
  Receipt Date: 20150223
  Transmission Date: 20150721
  Serious: Yes (Other)
  Sender: FDA-Public Use
  Company Number: US-TEVA-541945USA

PATIENT
  Sex: Female

DRUGS (1)
  1. COPAXONE [Suspect]
     Active Substance: GLATIRAMER ACETATE
     Indication: MULTIPLE SCLEROSIS
     Dosage: UNKNOWN FORM STRENGTH

REACTIONS (22)
  - Multiple sclerosis [Unknown]
  - Paraesthesia [Unknown]
  - Anxiety [Unknown]
  - Hypoaesthesia [Unknown]
  - Vision blurred [Unknown]
  - Fatigue [Unknown]
  - Chills [Unknown]
  - Neck pain [Unknown]
  - Headache [Unknown]
  - Dyspnoea [Unknown]
  - Cough [Unknown]
  - Hyperreflexia [Unknown]
  - Injection site reaction [Unknown]
  - Pyrexia [Unknown]
  - Chest pain [Unknown]
  - Dysuria [Unknown]
  - Dysaesthesia [Unknown]
  - Obesity [Unknown]
  - Muscular weakness [Unknown]
  - Gait spastic [Unknown]
  - Multiple sclerosis relapse [Unknown]
  - Nausea [Unknown]
